FAERS Safety Report 25238776 (Version 1)
Quarter: 2025Q2

REPORT INFORMATION
  Report Type: Spontaneous
  Country: CN (occurrence: CN)
  Receive Date: 20250425
  Receipt Date: 20250425
  Transmission Date: 20250716
  Serious: Yes (Life-Threatening, Other)
  Sender: GE HEALTHCARE
  Company Number: CN-GE HEALTHCARE-2025CSU004473

PATIENT
  Age: 60 Year
  Sex: Male

DRUGS (10)
  1. VISIPAQUE [Suspect]
     Active Substance: IODIXANOL
     Indication: Angiogram cerebral
     Route: 013
     Dates: start: 20250407
  2. VISIPAQUE [Suspect]
     Active Substance: IODIXANOL
     Indication: Arterial angioplasty
  3. VISIPAQUE [Suspect]
     Active Substance: IODIXANOL
     Indication: Brain stent insertion
  4. LOXOPROFEN SODIUM [Concomitant]
     Active Substance: LOXOPROFEN SODIUM
     Indication: Body temperature increased
     Dosage: UNK, QD
     Dates: start: 20250331, end: 20250331
  5. BUTYLPHTHALIDE [Concomitant]
     Active Substance: BUTYLPHTHALIDE
     Dosage: 100 ML, BID
     Route: 041
     Dates: start: 20250328, end: 20250407
  6. Shu xue tong [Concomitant]
     Dosage: 6 ML, QD
     Route: 041
     Dates: start: 20250328, end: 20250407
  7. CLOPIDOGREL BISULFATE [Concomitant]
     Active Substance: CLOPIDOGREL BISULFATE
     Dosage: 75 MG, QD
     Route: 048
     Dates: start: 20250328, end: 20250407
  8. ROSUVASTATIN CALCIUM [Concomitant]
     Active Substance: ROSUVASTATIN CALCIUM
     Dosage: 20 MG, QD
     Dates: start: 20250328, end: 20250407
  9. CILOSTAZOL [Concomitant]
     Active Substance: CILOSTAZOL
     Dosage: 100 MG, BID
     Route: 048
     Dates: start: 20250328, end: 20250407
  10. CEFOPERAZONE SODIUM\SULBACTAM SODIUM [Concomitant]
     Active Substance: CEFOPERAZONE SODIUM\SULBACTAM SODIUM
     Dosage: 3 GM, BID
     Route: 041
     Dates: start: 20250331, end: 20250407

REACTIONS (2)
  - Anaphylactic shock [Recovering/Resolving]
  - Atelectasis [Recovered/Resolved]

NARRATIVE: CASE EVENT DATE: 20250407
